FAERS Safety Report 19237333 (Version 1)
Quarter: 2021Q2

REPORT INFORMATION
  Report Type: Spontaneous
  Country: US (occurrence: US)
  Receive Date: 20210510
  Receipt Date: 20210510
  Transmission Date: 20210717
  Serious: Yes (Life-Threatening, Hospitalization, Other)
  Sender: FDA-Public Use
  Company Number: None

PATIENT
  Age: 72 Year
  Sex: Male
  Weight: 44 kg

DRUGS (1)
  1. PIPERACILLIN/TAZOBACTAM [Suspect]
     Active Substance: PIPERACILLIN SODIUM\TAZOBACTAM SODIUM
     Indication: PNEUMONIA
     Dosage: ?          OTHER ROUTE:IV?
     Route: 042
     Dates: start: 20210223, end: 20210312

REACTIONS (9)
  - Hypophagia [None]
  - Drug reaction with eosinophilia and systemic symptoms [None]
  - Hepatic enzyme increased [None]
  - Thrombocytopenia [None]
  - Acute kidney injury [None]
  - Asthenia [None]
  - Rash [None]
  - Eosinophilia [None]
  - Rash maculo-papular [None]

NARRATIVE: CASE EVENT DATE: 20210312
